FAERS Safety Report 8480678-6 (Version None)
Quarter: 2012Q3

REPORT INFORMATION
  Report Type: 
  Country: None (occurrence: None)
  Receive Date: 20120702
  Receipt Date: 20120628
  Transmission Date: 20120928
  Serious: No
  Sender: FDA-Public Use
  Company Number: US-PFIZER INC-2012156199

PATIENT
  Sex: Male
  Weight: 72.562 kg

DRUGS (1)
  1. INLYTA [Suspect]
     Dosage: UNK
     Dates: start: 20120101

REACTIONS (2)
  - VOMITING [None]
  - CONSTIPATION [None]
